FAERS Safety Report 5678497-9 (Version None)
Quarter: 2008Q1

REPORT INFORMATION
  Report Type: 
  Country: None (occurrence: None)
  Receive Date: 20080325
  Receipt Date: 20080321
  Transmission Date: 20080703
  Serious: Yes (Hospitalization)
  Sender: FDA-Public Use
  Company Number: FR-BRISTOL-MYERS SQUIBB COMPANY-14122550

PATIENT
  Age: 43 Year
  Sex: Female

DRUGS (6)
  1. METFORMIN HCL [Suspect]
     Indication: DIABETES MELLITUS
     Dosage: TAKEN AS TABLET.
     Route: 048
     Dates: start: 20040101, end: 20060401
  2. TRIATEC [Suspect]
     Indication: HYPERTENSION
     Dosage: TAKEN AS TABLET.
     Route: 048
     Dates: start: 20040101, end: 20060401
  3. LANTUS [Suspect]
     Indication: DIABETES MELLITUS
     Dosage: TAKEN AS SOLUTION.
     Route: 058
  4. REPAGLINIDE [Suspect]
     Indication: DIABETES MELLITUS
     Route: 065
     Dates: end: 20060401
  5. TACROLIMUS [Suspect]
     Indication: RENAL TRANSPLANT
     Dosage: TAKEN FOR 9 YEARS.
     Route: 065
     Dates: start: 19970101
  6. IRBESARTAN [Concomitant]
     Indication: HYPERTENSION
     Route: 048
     Dates: start: 20060101, end: 20060401

REACTIONS (1)
  - ANAEMIA HAEMOLYTIC AUTOIMMUNE [None]
